FAERS Safety Report 5865217-8 (Version None)
Quarter: 2008Q3

REPORT INFORMATION
  Report Type: 
  Country: None (occurrence: None)
  Receive Date: 20080829
  Receipt Date: 20080822
  Transmission Date: 20090109
  Serious: Yes (Hospitalization)
  Sender: FDA-Public Use
  Company Number: B0533959A

PATIENT
  Age: 76 Year
  Sex: Male

DRUGS (1)
  1. ZOVIRAX [Suspect]
     Indication: HERPES ZOSTER
     Dosage: 250MG PER DAY
     Route: 042
     Dates: start: 20080814

REACTIONS (4)
  - ANOREXIA [None]
  - CYANOPSIA [None]
  - HALLUCINATION, AUDITORY [None]
  - VOMITING [None]
